FAERS Safety Report 11536820 (Version 2)
Quarter: 2015Q4

REPORT INFORMATION
  Report Type: Spontaneous
  Country: IT (occurrence: IT)
  Receive Date: 20150922
  Receipt Date: 20151022
  Transmission Date: 20160304
  Serious: Yes (Other)
  Sender: FDA-Public Use
  Company Number: IT-PFIZER INC-2015250897

PATIENT
  Age: 24 Year
  Sex: Female

DRUGS (1)
  1. XANAX [Suspect]
     Active Substance: ALPRAZOLAM
     Dosage: UNK

REACTIONS (9)
  - Somnolence [Unknown]
  - Anxiety [Unknown]
  - Mental disorder [Unknown]
  - Alcohol poisoning [Unknown]
  - Affect lability [Unknown]
  - Overdose [Unknown]
  - Stress [Unknown]
  - Feeling of despair [Unknown]
  - Crying [Unknown]

NARRATIVE: CASE EVENT DATE: 2015
